FAERS Safety Report 23534759 (Version 1)
Quarter: 2024Q1

REPORT INFORMATION
  Report Type: Report from Study
  Country: IE (occurrence: IE)
  Receive Date: 20240217
  Receipt Date: 20240217
  Transmission Date: 20240409
  Serious: Yes (Hospitalization)
  Sender: FDA-Public Use
  Company Number: IE-ABBVIE-5643839

PATIENT
  Age: 72 Year
  Sex: Male

DRUGS (14)
  1. CARBIDOPA\LEVODOPA [Suspect]
     Active Substance: CARBIDOPA\LEVODOPA
     Indication: Parkinson^s disease
     Dosage: CONTINUOUS
     Route: 050
  2. CARBIDOPA\LEVODOPA [Suspect]
     Active Substance: CARBIDOPA\LEVODOPA
     Dosage: 2 CASSETTE, CONTINUOUS
     Route: 050
     Dates: start: 20220302
  3. CARBIDOPA\LEVODOPA [Concomitant]
     Active Substance: CARBIDOPA\LEVODOPA
     Indication: Product used for unknown indication
     Dosage: TIME INTERVAL: 0.33333333 DAYS: 125MG; 25/100MG AT 7AM,11AM ,3PM
  4. Clozapine eg [Concomitant]
     Indication: Product used for unknown indication
  5. Clozapine eg [Concomitant]
     Indication: Product used for unknown indication
     Dosage: AT NIGHT
  6. EXELON [Concomitant]
     Active Substance: RIVASTIGMINE TARTRATE
     Indication: Product used for unknown indication
     Dosage: 9.5MG, 24HR
  7. AZILECT [Concomitant]
     Active Substance: RASAGILINE MESYLATE
     Indication: Product used for unknown indication
     Dosage: AT 06:15AM,
  8. STALEVO [Concomitant]
     Active Substance: CARBIDOPA\ENTACAPONE\LEVODOPA
     Indication: Product used for unknown indication
     Dosage: TIME INTERVAL: 0.14285714 DAYS: 1 TAB; 150/37.5MG/200MG (6:15AM/8:15/10:15/12:15/14:15/16:15/18:1...
  9. Apogo pen [Concomitant]
     Indication: Product used for unknown indication
     Dosage: 50.1MG; 50MG/10ML, FREQUENCY TEXT: 24HOURS
  10. SINEMET [Concomitant]
     Active Substance: CARBIDOPA\LEVODOPA
     Indication: Product used for unknown indication
     Dosage: 50/200MG (9PM); 50.2MG, CR
  11. NORTRIPTYLINE HYDROCHLORIDE [Concomitant]
     Active Substance: NORTRIPTYLINE HYDROCHLORIDE
     Indication: Product used for unknown indication
  12. NEUPRO [Concomitant]
     Active Substance: ROTIGOTINE
     Indication: Product used for unknown indication
     Dosage: PATCH,  FREQUENCY TEXT: 24 HOURS
  13. ONGENTYS [Concomitant]
     Active Substance: OPICAPONE
     Indication: Product used for unknown indication
     Dosage: AT NIGHT
  14. MOVICOL [Concomitant]
     Active Substance: POLYETHYLENE GLYCOL 3350\POTASSIUM CHLORIDE\SODIUM BICARBONATE\SODIUM CHLORIDE
     Indication: Product used for unknown indication
     Dosage: SACHET

REACTIONS (1)
  - Venous operation [Recovered/Resolved]

NARRATIVE: CASE EVENT DATE: 20240201
